FAERS Safety Report 4464914-9 (Version None)
Quarter: 2004Q4

REPORT INFORMATION
  Report Type: 
  Country: None (occurrence: None)
  Receive Date: 20041004
  Receipt Date: 20040217
  Transmission Date: 20050328
  Serious: No
  Sender: FDA-Public Use
  Company Number: 361796

PATIENT

DRUGS (1)
  1. COREG [Suspect]
     Dosage: 25MG TWICE PER DAY
     Route: 048

REACTIONS (1)
  - HYPERTENSION [None]
